FAERS Safety Report 5765470-5 (Version None)
Quarter: 2008Q2

REPORT INFORMATION
  Report Type: 
  Country: None (occurrence: None)
  Receive Date: 20080611
  Receipt Date: 20080603
  Transmission Date: 20081010
  Serious: Yes (Other)
  Sender: FDA-Public Use
  Company Number: B0360872A

PATIENT
  Age: 44 Year
  Sex: Female

DRUGS (10)
  1. PAROXETINE HCL [Suspect]
     Route: 065
     Dates: start: 19980326
  2. DIAZEPAM [Concomitant]
     Route: 065
  3. VENLAFAXINE HCL [Concomitant]
     Route: 065
  4. AMITRIPTYLINE HCL [Concomitant]
     Dates: start: 19870921
  5. PROZAC [Concomitant]
     Dates: start: 19990225
  6. LUSTRAL [Concomitant]
     Dates: start: 19990318
  7. DIAZEPAM [Concomitant]
     Dates: start: 19900821
  8. EFFEXOR [Concomitant]
     Dates: start: 20010501
  9. CITALOPRAM HYDROBROMIDE [Concomitant]
     Dates: start: 20050805
  10. BENDROFLUAZIDE [Concomitant]

REACTIONS (23)
  - AGITATION [None]
  - CONFUSIONAL STATE [None]
  - DECREASED APPETITE [None]
  - DEPRESSED MOOD [None]
  - DISTURBANCE IN ATTENTION [None]
  - DIZZINESS [None]
  - DRUG WITHDRAWAL SYNDROME [None]
  - FATIGUE [None]
  - HYPERHIDROSIS [None]
  - HYPOAESTHESIA [None]
  - INFLUENZA [None]
  - INSOMNIA [None]
  - LETHARGY [None]
  - MEMORY IMPAIRMENT [None]
  - MOOD SWINGS [None]
  - NAUSEA [None]
  - NIGHTMARE [None]
  - PANIC ATTACK [None]
  - SLEEP DISORDER [None]
  - SUICIDAL IDEATION [None]
  - TREMOR [None]
  - TRICHOTILLOMANIA [None]
  - VOMITING [None]
